FAERS Safety Report 25495981 (Version 1)
Quarter: 2025Q2

REPORT INFORMATION
  Report Type: Spontaneous
  Country: US (occurrence: US)
  Receive Date: 20250630
  Receipt Date: 20250630
  Transmission Date: 20250716
  Serious: No
  Sender: TAKEDA
  Company Number: US-TAKEDA-2025TUS049498

PATIENT
  Sex: Female

DRUGS (1)
  1. VYVANSE [Suspect]
     Active Substance: LISDEXAMFETAMINE DIMESYLATE
     Indication: Product used for unknown indication

REACTIONS (9)
  - Drug ineffective [Unknown]
  - Illness [Unknown]
  - Product odour abnormal [Unknown]
  - Sinus disorder [Unknown]
  - Gastritis [Unknown]
  - Intestinal metaplasia [Unknown]
  - Feeling abnormal [Unknown]
  - Chromaturia [Unknown]
  - Renal pain [Unknown]
